FAERS Safety Report 4590015-5 (Version None)
Quarter: 2005Q1

REPORT INFORMATION
  Report Type: 
  Country: None (occurrence: None)
  Receive Date: 20050217
  Receipt Date: 20050207
  Transmission Date: 20050727
  Serious: Yes (Life-Threatening, Hospitalization)
  Sender: FDA-Public Use
  Company Number: USA-2005-0018315

PATIENT
  Age: 68 Year
  Sex: Female

DRUGS (3)
  1. CEFDITOREN PIVOXIL    (CEFDITOREN PIVOXIL) [Suspect]
     Indication: PHARYNGOLARYNGEAL PAIN
     Dosage: 300 MG, TID, ORAL
     Route: 048
     Dates: start: 20050103
  2. LOXONIN                   (LOXOPROFEN SODIUM) [Concomitant]
  3. SELBEX (TEPRENONE) [Concomitant]

REACTIONS (3)
  - GENERALISED ERYTHEMA [None]
  - MUCOSAL EROSION [None]
  - RASH [None]
